FAERS Safety Report 10227313 (Version 2)
Quarter: 2014Q2

REPORT INFORMATION
  Report Type: Spontaneous
  Country: PL (occurrence: None)
  Receive Date: 20140606
  Receipt Date: 20140630
  Transmission Date: 20141212
  Serious: Yes (Hospitalization, Other)
  Sender: FDA-Public Use
  Company Number: 2014AP003218

PATIENT
  Age: 17 Year
  Sex: Female
  Weight: 55 kg

DRUGS (4)
  1. AMLODIPINE [Suspect]
     Indication: SUICIDE ATTEMPT
     Route: 048
  2. CAPTOPRIL [Suspect]
     Indication: SUICIDE ATTEMPT
     Route: 048
  3. BISOPROLOL [Suspect]
     Indication: SUICIDE ATTEMPT
     Route: 048
  4. NORADRENALINE /00127501/ [Suspect]
     Indication: CARDIAC FAILURE ACUTE
     Route: 048

REACTIONS (16)
  - Cardiac failure acute [None]
  - Toxicity to various agents [None]
  - Multi-organ failure [None]
  - Suicide attempt [None]
  - Hyperglycaemia [None]
  - Abdominal pain [None]
  - Hypothermia [None]
  - Cyanosis [None]
  - Metabolic acidosis [None]
  - Pulmonary oedema [None]
  - Circulatory collapse [None]
  - Respiratory failure [None]
  - Continuous haemodiafiltration [None]
  - Blood magnesium decreased [None]
  - Blood calcium decreased [None]
  - Intentional overdose [None]
